FAERS Safety Report 20751419 (Version 1)
Quarter: 2022Q2

REPORT INFORMATION
  Report Type: Other
  Country: GB (occurrence: GB)
  Receive Date: 20220426
  Receipt Date: 20220426
  Transmission Date: 20220721
  Serious: No
  Sender: FDA-Public Use
  Company Number: None

PATIENT
  Age: 20 Year
  Sex: Female
  Weight: 70 kg

DRUGS (5)
  1. SERTRALINE HYDROCHLORIDE [Suspect]
     Active Substance: SERTRALINE HYDROCHLORIDE
     Indication: Product used for unknown indication
     Dosage: 50 MILLIGRAM, QD, REVIEW DOSE IN APRIL 2021
     Route: 065
     Dates: start: 20210428
  2. CILIQUE [Concomitant]
     Indication: Product used for unknown indication
     Dosage: 1 DOSAGE FORM, QD, TAKE ONE A DAY FOR 21 DAYS THEN HAVE A 7 DAY BREAK
     Route: 065
     Dates: start: 20220112
  3. CLOTRIMAZOLE [Concomitant]
     Active Substance: CLOTRIMAZOLE
     Indication: Product used for unknown indication
     Dosage: UNK UNK, BID, INSERT PESSARY AT BEDTIME AND USE CREAM TWICE
     Route: 065
     Dates: start: 20220301, end: 20220302
  4. FLUCLOXACILLIN [Concomitant]
     Active Substance: FLUCLOXACILLIN
     Indication: Product used for unknown indication
     Dosage: 1 DOSAGE FORM, QID, TAKE ONE FOUR TIMES PER DAY
     Route: 065
     Dates: start: 20220317, end: 20220324
  5. FLUOXETINE [Concomitant]
     Active Substance: FLUOXETINE HYDROCHLORIDE
     Indication: Affective disorder
     Dosage: 1 DOSAGE FORM, QD, TAKE ONE DAILY FOR YOUR MOOD INSTEAD SERTRALINE.
     Route: 065
     Dates: start: 20220318

REACTIONS (1)
  - Nausea [Recovered/Resolved]

NARRATIVE: CASE EVENT DATE: 20220408
